FAERS Safety Report 23237410 (Version 1)
Quarter: 2023Q4

REPORT INFORMATION
  Report Type: Spontaneous
  Country: US (occurrence: None)
  Receive Date: 20231128
  Receipt Date: 20231128
  Transmission Date: 20240109
  Serious: Yes (Disabling, Other)
  Sender: FDA-Public Use
  Company Number: None

PATIENT
  Age: 68 Year
  Sex: Male
  Weight: 76.66 kg

DRUGS (16)
  1. DUPIXENT [Suspect]
     Active Substance: DUPILUMAB
     Indication: Eczema
     Dosage: 2 X 2 PENS 2 X A MOUTH AUTO PEN INJECTION?
     Dates: start: 202310, end: 202311
  2. TRAMADOL [Concomitant]
     Active Substance: TRAMADOL\TRAMADOL HYDROCHLORIDE
  3. FLEXERIL [Concomitant]
     Active Substance: CYCLOBENZAPRINE HYDROCHLORIDE
  4. ATTAREX [Concomitant]
  5. LIDOCAINE-LIQUID [Concomitant]
  6. ASPIRIN [Concomitant]
     Active Substance: ASPIRIN
  7. HEARING AIDS [Concomitant]
  8. A-CANE [Concomitant]
  9. HYDROCODONE - STOPPED IT [Concomitant]
  10. GABLIN [Concomitant]
  11. NAPROXEN [Concomitant]
     Active Substance: NAPROXEN
  12. LISINOPRIL [Concomitant]
     Active Substance: LISINOPRIL
  13. SIMVASTATIN [Concomitant]
     Active Substance: SIMVASTATIN
  14. CETIRIZINE HYDROCHLORIDE [Concomitant]
     Active Substance: CETIRIZINE HYDROCHLORIDE
  15. VITAMIN D [Concomitant]
     Active Substance: VITAMIN D NOS
  16. LIDOCAINE [Concomitant]
     Active Substance: LIDOCAINE

REACTIONS (7)
  - Epistaxis [None]
  - Dysphonia [None]
  - Dysphagia [None]
  - Back pain [None]
  - Arthralgia [None]
  - Pain in extremity [None]
  - Gait disturbance [None]

NARRATIVE: CASE EVENT DATE: 20231110
